FAERS Safety Report 4677456-2 (Version None)
Quarter: 2005Q2

REPORT INFORMATION
  Report Type: 
  Country: None (occurrence: None)
  Receive Date: 20050526
  Receipt Date: 20050526
  Transmission Date: 20051028
  Serious: No
  Sender: FDA-Public Use
  Company Number: None

PATIENT
  Age: 59 Year
  Sex: Male
  Weight: 78.4723 kg

DRUGS (1)
  1. ASPIRIN [Suspect]
     Indication: HEADACHE
     Dosage: 650 MG DAILY

REACTIONS (8)
  - ASTHENIA [None]
  - COLONOSCOPY [None]
  - DIZZINESS [None]
  - FAECES HARD [None]
  - HAEMATOCHEZIA [None]
  - HAEMOGLOBIN DECREASED [None]
  - POLYPECTOMY [None]
  - POST PROCEDURAL COMPLICATION [None]
